FAERS Safety Report 8585018-X (Version None)
Quarter: 2012Q3

REPORT INFORMATION
  Report Type: 
  Country: None (occurrence: None)
  Receive Date: 20120730
  Receipt Date: 20120716
  Transmission Date: 20120928
  Serious: Yes (Hospitalization)
  Sender: FDA-Public Use
  Company Number: TIF2012A00040

PATIENT
  Age: 80 Year
  Sex: Male

DRUGS (6)
  1. PIOGLITAZONE HYDROCHLORIDE [Suspect]
     Indication: INSULIN-REQUIRING TYPE 2 DIABETES MELLITUS
     Dates: start: 20120401, end: 20120516
  2. KARVEZIDE (HYDROCHLOROTHIAZIDE, IRBESARTAN) [Concomitant]
  3. NEBIVOLOL HCL [Concomitant]
  4. OMEPRAZOLE [Concomitant]
  5. OXYCONTIN [Concomitant]
  6. METFORMIN HYDROCHLORIDE [Suspect]
     Dosage: ORAL
     Route: 048
     Dates: start: 20120401, end: 20120430

REACTIONS (3)
  - ACUTE MYOCARDIAL INFARCTION [None]
  - LACTIC ACIDOSIS [None]
  - RENAL FAILURE ACUTE [None]
